FAERS Safety Report 15978894 (Version 2)
Quarter: 2019Q1

REPORT INFORMATION
  Report Type: Report from Study
  Country: BE (occurrence: BE)
  Receive Date: 20190219
  Receipt Date: 20190226
  Transmission Date: 20190418
  Serious: Yes (Hospitalization)
  Sender: FDA-Public Use
  Company Number: BE-ROCHE-2267014

PATIENT
  Age: 53 Year
  Sex: Female
  Weight: 45.8 kg

DRUGS (10)
  1. POLARAMINE [Concomitant]
     Active Substance: DEXCHLORPHENIRAMINE MALEATE
     Route: 065
     Dates: start: 20190205, end: 20190205
  2. DAFALGAN [Concomitant]
     Active Substance: ACETAMINOPHEN
     Route: 065
     Dates: start: 20190205, end: 20190205
  3. ZANTAC [Concomitant]
     Active Substance: RANITIDINE HYDROCHLORIDE
     Route: 065
     Dates: start: 20190205, end: 20190205
  4. DURAGESIC (FENTANYL) [Concomitant]
     Route: 065
     Dates: start: 20190116
  5. DOMINAL (BELGIUM) [Concomitant]
     Route: 065
     Dates: start: 201803
  6. SOLU-MEDROL [Concomitant]
     Active Substance: METHYLPREDNISOLONE SODIUM SUCCINATE
     Route: 065
     Dates: start: 20190205, end: 20190205
  7. OXYNORM [Concomitant]
     Active Substance: OXYCODONE HYDROCHLORIDE
     Route: 065
     Dates: start: 201809
  8. ATEZOLIZUMAB. [Suspect]
     Active Substance: ATEZOLIZUMAB
     Indication: HEPATOCELLULAR CARCINOMA
     Route: 042
     Dates: start: 20190205, end: 20190205
  9. NEXAVAR [Concomitant]
     Active Substance: SORAFENIB
     Route: 065
     Dates: start: 20180927, end: 20190121
  10. ISATUXIMAB [Suspect]
     Active Substance: ISATUXIMAB
     Indication: HEPATOCELLULAR CARCINOMA
     Route: 042
     Dates: start: 20190205, end: 20190205

REACTIONS (1)
  - Peritoneal haemorrhage [Not Recovered/Not Resolved]

NARRATIVE: CASE EVENT DATE: 20190208
